FAERS Safety Report 12620681 (Version 3)
Quarter: 2016Q3

REPORT INFORMATION
  Report Type: Spontaneous
  Country: US (occurrence: US)
  Receive Date: 20160804
  Receipt Date: 20160808
  Transmission Date: 20161109
  Serious: No
  Sender: FDA-Public Use
  Company Number: US-BEH-2016062430

PATIENT
  Sex: Female
  Weight: 67 kg

DRUGS (25)
  1. PERCOCET [Concomitant]
     Active Substance: ACETAMINOPHEN\OXYCODONE HYDROCHLORIDE
  2. VISINE [Concomitant]
     Active Substance: TETRAHYDROZOLINE HYDROCHLORIDE
  3. ACETAMINOPHEN. [Concomitant]
     Active Substance: ACETAMINOPHEN
  4. LIDOCAINE 4% [Concomitant]
     Active Substance: LIDOCAINE
  5. DIPHENHYDRAMINE. [Concomitant]
     Active Substance: DIPHENHYDRAMINE
  6. ESOMEPRAZOLE [Concomitant]
     Active Substance: ESOMEPRAZOLE
  7. FLONASE [Concomitant]
     Active Substance: FLUTICASONE PROPIONATE
  8. HIZENTRA [Suspect]
     Active Substance: HUMAN IMMUNOGLOBULIN G
     Route: 058
  9. HIZENTRA [Suspect]
     Active Substance: HUMAN IMMUNOGLOBULIN G
     Indication: IMMUNODEFICIENCY COMMON VARIABLE
     Route: 058
  10. HIZENTRA [Suspect]
     Active Substance: HUMAN IMMUNOGLOBULIN G
     Route: 058
  11. OMEPRAZOLE. [Concomitant]
     Active Substance: OMEPRAZOLE
  12. SIMVASTATIN. [Concomitant]
     Active Substance: SIMVASTATIN
  13. CALCIUM+D [Concomitant]
     Active Substance: CALCIUM\VITAMIN D
  14. VITAMIN E [Concomitant]
     Active Substance: .ALPHA.-TOCOPHEROL
  15. ZOCOR [Concomitant]
     Active Substance: SIMVASTATIN
  16. LORAZEPAM. [Concomitant]
     Active Substance: LORAZEPAM
  17. GABAPENTIN. [Concomitant]
     Active Substance: GABAPENTIN
  18. HIZENTRA [Suspect]
     Active Substance: HUMAN IMMUNOGLOBULIN G
     Route: 058
  19. EPIPEN [Concomitant]
     Active Substance: EPINEPHRINE
  20. PROBIOTIC [Concomitant]
     Active Substance: PROBIOTICS NOS
  21. LAMICTAL [Concomitant]
     Active Substance: LAMOTRIGINE
  22. FLUOXETINE [Concomitant]
     Active Substance: FLUOXETINE HYDROCHLORIDE
  23. PROAIR HFA [Concomitant]
     Active Substance: ALBUTEROL SULFATE
  24. ADVAIR HFA [Concomitant]
     Active Substance: FLUTICASONE PROPIONATE\SALMETEROL XINAFOATE
  25. MULTIVITAMINS [Concomitant]
     Active Substance: VITAMINS

REACTIONS (2)
  - Sinusitis [Unknown]
  - Influenza [Unknown]
